FAERS Safety Report 5298966-3 (Version None)
Quarter: 2007Q2

REPORT INFORMATION
  Report Type: 
  Country: None (occurrence: None)
  Receive Date: 20070417
  Receipt Date: 20070404
  Transmission Date: 20071010
  Serious: Yes (Hospitalization)
  Sender: FDA-Public Use
  Company Number: CA-AMGEN-US216194

PATIENT
  Sex: Female

DRUGS (9)
  1. PANITUMUMAB [Suspect]
     Route: 042
     Dates: start: 20070111, end: 20070307
  2. PANITUMUMAB [Suspect]
     Route: 042
     Dates: start: 20070307, end: 20070307
  3. OXALIPLATIN [Concomitant]
     Dates: start: 20070101, end: 20070308
  4. FLUOROURACIL [Concomitant]
     Dates: start: 20070101, end: 20070308
  5. LANSOPRAZOLE [Concomitant]
     Route: 048
  6. OXYCONTIN [Concomitant]
     Route: 048
     Dates: start: 20070320, end: 20070323
  7. HYDROXYZINE [Concomitant]
     Route: 048
  8. GRAVOL TAB [Concomitant]
     Dates: start: 20070321, end: 20070321
  9. NEUPOGEN [Concomitant]
     Route: 058
     Dates: start: 20070322, end: 20070322

REACTIONS (1)
  - CELLULITIS [None]
